FAERS Safety Report 22728808 (Version 3)
Quarter: 2023Q4

REPORT INFORMATION
  Report Type: Spontaneous
  Country: AU (occurrence: AU)
  Receive Date: 20230720
  Receipt Date: 20231218
  Transmission Date: 20240110
  Serious: Yes (Other)
  Sender: FDA-Public Use
  Company Number: AU-ViiV Healthcare Limited-72983

PATIENT

DRUGS (4)
  1. CABENUVA [Suspect]
     Active Substance: CABOTEGRAVIR\RILPIVIRINE
     Indication: Product used for unknown indication
     Dosage: UNK
  2. CABENUVA [Suspect]
     Active Substance: CABOTEGRAVIR\RILPIVIRINE
  3. CABENUVA [Suspect]
     Active Substance: CABOTEGRAVIR\RILPIVIRINE
  4. VOCABRIA [Suspect]
     Active Substance: CABOTEGRAVIR SODIUM

REACTIONS (3)
  - Hepatitis B [Unknown]
  - Injection site pain [Unknown]
  - Anticoagulant therapy [Unknown]
